FAERS Safety Report 20460015 (Version 1)
Quarter: 2022Q1

REPORT INFORMATION
  Report Type: Spontaneous
  Country: CN (occurrence: CN)
  Receive Date: 20220211
  Receipt Date: 20220211
  Transmission Date: 20220424
  Serious: Yes (Other)
  Sender: FDA-Public Use
  Company Number: CN-JNJFOC-20220225558

PATIENT
  Age: 71 Year
  Sex: Female
  Weight: 49 kg

DRUGS (6)
  1. TYLENOL 8HR [Suspect]
     Active Substance: ACETAMINOPHEN
     Indication: Product used for unknown indication
     Dosage: MEDICATION - DOSES:1 ?MEDICATION - DAYS:1
     Route: 048
     Dates: start: 20220126, end: 20220127
  2. DARATUMUMAB [Suspect]
     Active Substance: DARATUMUMAB
     Indication: Plasma cell myeloma
     Dosage: MEDICATION - DOSES:1 ?MEDICATION - DAYS:1
     Route: 041
     Dates: start: 20220126, end: 20220127
  3. CHLORPHENIRAMINE MALEATE [Suspect]
     Active Substance: CHLORPHENIRAMINE MALEATE
     Indication: Product used for unknown indication
     Dosage: MEDICATION - DOSES:1 ?MEDICATION - DAYS:1
     Route: 041
     Dates: start: 20220126, end: 20220126
  4. SODIUM CHLORIDE [Suspect]
     Active Substance: SODIUM CHLORIDE
     Indication: Menstrual cycle management
     Dosage: MEDICATION - DOSES:1 ?MEDICATION - DAYS:1
     Route: 041
     Dates: start: 20220126, end: 20220127
  5. SODIUM CHLORIDE [Suspect]
     Active Substance: SODIUM CHLORIDE
     Dosage: MEDICATION - DOSES:1 ?MEDICATION - DAYS:1
     Route: 041
     Dates: start: 20220126, end: 20220127
  6. CIMETIDINE [Suspect]
     Active Substance: CIMETIDINE
     Indication: Product used for unknown indication
     Dosage: MEDICATION - DOSES:1 ?MEDICATION - DAYS:1
     Route: 041
     Dates: start: 20220126, end: 20220126

REACTIONS (5)
  - Chills [Recovered/Resolved]
  - Pyrexia [Recovered/Resolved]
  - Heart rate increased [Recovered/Resolved]
  - Blood pressure increased [Recovered/Resolved]
  - Pruritus [Recovered/Resolved]

NARRATIVE: CASE EVENT DATE: 20220126
